FAERS Safety Report 10034891 (Version 1)
Quarter: 2014Q1

REPORT INFORMATION
  Report Type: Spontaneous
  Country: FR (occurrence: None)
  Receive Date: 20140321
  Receipt Date: 20140321
  Transmission Date: 20141002
  Serious: Yes (Other)
  Sender: FDA-Public Use
  Company Number: SP07616

PATIENT
  Age: 53 Year
  Sex: Female

DRUGS (1)
  1. OSMOPREP TABLET [Suspect]
     Dates: start: 20140213, end: 20140213

REACTIONS (7)
  - Malaise [None]
  - Vomiting [None]
  - Diarrhoea [None]
  - Blood pressure decreased [None]
  - Oxygen saturation decreased [None]
  - Blood potassium decreased [None]
  - Blood sodium decreased [None]
